FAERS Safety Report 8806011 (Version 1)
Quarter: 2012Q4

REPORT INFORMATION
  Report Type: Spontaneous
  Country: US (occurrence: None)
  Receive Date: 20120919
  Receipt Date: 20120919
  Transmission Date: 20130627
  Serious: Yes (Other)
  Sender: FDA-Public Use
  Company Number: None

PATIENT
  Sex: Female
  Weight: 49.9 kg

DRUGS (2)
  1. SINGULAIR [Suspect]
     Indication: SEASONAL ALLERGIC RHINITIS
     Dosage: 5mg q2 days or so po
     Route: 048
     Dates: start: 20120520, end: 20120818
  2. MONTELUKAST [Suspect]
     Route: 048
     Dates: start: 20120821, end: 20120912

REACTIONS (4)
  - Insomnia [None]
  - Anxiety [None]
  - Palpitations [None]
  - Impaired work ability [None]
